FAERS Safety Report 6693583-2 (Version None)
Quarter: 2010Q2

REPORT INFORMATION
  Report Type: 
  Country: None (occurrence: None)
  Receive Date: 20100423
  Receipt Date: 20100210
  Transmission Date: 20101027
  Serious: No
  Sender: FDA-Public Use
  Company Number: 2008BI001052

PATIENT
  Age: 29 Year
  Sex: Female

DRUGS (3)
  1. AVONEX [Suspect]
     Indication: MULTIPLE SCLEROSIS
     Route: 030
     Dates: start: 19980101, end: 20010701
  2. AVONEX [Suspect]
     Route: 030
     Dates: start: 20040101, end: 20070201
  3. AVONEX [Suspect]

REACTIONS (3)
  - PREMATURE LABOUR [None]
  - RASH [None]
  - STAPHYLOCOCCUS TEST POSITIVE [None]
